FAERS Safety Report 24605733 (Version 4)
Quarter: 2024Q4

REPORT INFORMATION
  Report Type: Spontaneous
  Country: JP (occurrence: JP)
  Receive Date: 20241111
  Receipt Date: 20241230
  Transmission Date: 20250114
  Serious: Yes (Death)
  Sender: CARA THERAPEUTICS
  Company Number: JP-CARA THERAPEUTICS, INC.-2024-00451-JP

PATIENT
  Age: 77 Year
  Sex: Male

DRUGS (9)
  1. KORSUVA [Suspect]
     Active Substance: DIFELIKEFALIN ACETATE
     Indication: Pruritus
     Dosage: 25 ?G/ (25 ?G/     )
     Route: 042
     Dates: start: 20240918, end: 20241015
  2. ASPIRIN [Concomitant]
     Active Substance: ASPIRIN
  3. BISOPROLOL FUMARATE [Concomitant]
     Active Substance: BISOPROLOL FUMARATE
  4. VERQUVO [Concomitant]
     Active Substance: VERICIGUAT
  5. OXYMETAZOLINE HYDROCHLORIDE [Concomitant]
     Active Substance: OXYMETAZOLINE HYDROCHLORIDE
  6. VONOPRAZAN FUMARATE [Concomitant]
     Active Substance: VONOPRAZAN FUMARATE
  7. PIMOBENDAN [Concomitant]
     Active Substance: PIMOBENDAN
  8. LINAGLIPTIN [Concomitant]
     Active Substance: LINAGLIPTIN
  9. UMECLIDINIUM BROMIDE\VILANTEROL TRIFENATATE [Concomitant]
     Active Substance: UMECLIDINIUM BROMIDE\VILANTEROL TRIFENATATE

REACTIONS (3)
  - Chronic obstructive pulmonary disease [Fatal]
  - Vomiting [Recovered/Resolved]
  - Nausea [Recovered/Resolved]

NARRATIVE: CASE EVENT DATE: 20240918
